FAERS Safety Report 23038956 (Version 1)
Quarter: 2023Q4

REPORT INFORMATION
  Report Type: Report from Study
  Country: US (occurrence: US)
  Receive Date: 20231006
  Receipt Date: 20231006
  Transmission Date: 20240110
  Serious: No
  Sender: FDA-Public Use
  Company Number: US-002147023-NVSC2023US215905

PATIENT
  Age: 66 Year
  Sex: Female

DRUGS (1)
  1. COSENTYX [Suspect]
     Active Substance: SECUKINUMAB
     Indication: Product used for unknown indication
     Dosage: UNK, OTHER
     Route: 065
     Dates: start: 202212, end: 202305

REACTIONS (2)
  - Rash [Unknown]
  - Bacterial infection [Unknown]

NARRATIVE: CASE EVENT DATE: 20221201
